FAERS Safety Report 19752960 (Version 7)
Quarter: 2022Q4

REPORT INFORMATION
  Report Type: Report from Study
  Country: US (occurrence: US)
  Receive Date: 20210826
  Receipt Date: 20221014
  Transmission Date: 20230113
  Serious: Yes (Hospitalization)
  Sender: FDA-Public Use
  Company Number: US-RIGEL PHARMACEUTICALS, INC.-2021FOS000537

PATIENT
  Sex: Female
  Weight: 80.7 kg

DRUGS (17)
  1. FOSTAMATINIB DISODIUM [Suspect]
     Active Substance: FOSTAMATINIB DISODIUM
     Indication: COVID-19
     Dosage: 150 MG, BID
     Route: 048
     Dates: start: 20210810, end: 20210813
  2. INSULIN ASPART [Concomitant]
     Active Substance: INSULIN ASPART
     Indication: Hyperglycaemia
     Dosage: 1 UNIT 5 TIMES A DAY,PRN
     Route: 058
     Dates: start: 20210809
  3. AMLODIPINE [Concomitant]
     Active Substance: AMLODIPINE BESYLATE
     Indication: Hypertension
     Dosage: 5 MG, QD
     Route: 048
     Dates: start: 20210809
  4. POLYETHYLENE GLYCOLS [Concomitant]
     Active Substance: POLYETHYLENE GLYCOLS
     Indication: Constipation
     Dosage: 17 GRAM, QD
     Route: 048
     Dates: start: 20210809, end: 20210813
  5. ACETAMINOPHEN\HYDROCODONE [Concomitant]
     Active Substance: ACETAMINOPHEN\HYDROCODONE
     Indication: Pain
     Dosage: 1 DOSAGE FORM, PRN
     Route: 048
     Dates: start: 20210810
  6. REMDESIVIR [Concomitant]
     Active Substance: REMDESIVIR
     Indication: COVID-19 pneumonia
     Dosage: 200 MG, SINGLE
     Route: 042
     Dates: start: 20210809, end: 20210809
  7. REMDESIVIR [Concomitant]
     Active Substance: REMDESIVIR
     Dosage: 100 MG, QD
     Route: 042
     Dates: start: 20210810
  8. DEXAMETHASONE [Concomitant]
     Active Substance: DEXAMETHASONE
     Indication: COVID-19 pneumonia
     Dosage: 10 MG, BID
     Route: 042
     Dates: start: 20210809, end: 20210812
  9. ACETAMINOPHEN [Concomitant]
     Active Substance: ACETAMINOPHEN
     Indication: Pain
     Dosage: 650 MG, TID
     Route: 048
     Dates: start: 20210810
  10. ALBUTEROL [Concomitant]
     Active Substance: ALBUTEROL
     Indication: COVID-19 pneumonia
     Dosage: 180 MICROGRAM, QID
     Dates: start: 20210810
  11. BENZONATATE [Concomitant]
     Active Substance: BENZONATATE
     Indication: COVID-19 pneumonia
     Dosage: 100 MG, TID
     Route: 048
     Dates: start: 20210808
  12. CYANOCOBALAMIN [Concomitant]
     Active Substance: CYANOCOBALAMIN
     Indication: Supplementation therapy
     Dosage: 1000 MICROGRAM, QD
     Route: 048
     Dates: start: 20210808
  13. DOCUSATE\SENNOSIDES [Concomitant]
     Active Substance: DOCUSATE\SENNOSIDES
     Indication: Constipation
     Dosage: 2 DOSAGE FORM, QHS
     Route: 048
     Dates: start: 20210809
  14. GUAIFENESIN [Concomitant]
     Active Substance: GUAIFENESIN
     Indication: COVID-19 pneumonia
     Dosage: 40 MG, TID
     Route: 048
     Dates: start: 20210810
  15. ENOXAPARIN [Concomitant]
     Active Substance: ENOXAPARIN
     Indication: Prophylaxis
     Dosage: 40 MG, QD
     Route: 058
     Dates: start: 20210809
  16. PANTOPRAZOLE [Concomitant]
     Active Substance: PANTOPRAZOLE
     Indication: Prophylaxis
     Dosage: 40 MG, QD
     Route: 048
     Dates: start: 20210810, end: 20210814
  17. BISCO-ZITRON [BISACODYL] [Concomitant]
     Indication: Constipation
     Dosage: 10 MG, SINGLE
     Route: 054
     Dates: start: 20210811, end: 20210811

REACTIONS (2)
  - Diverticulitis intestinal perforated [Recovered/Resolved]
  - Colonic abscess [Recovered/Resolved]

NARRATIVE: CASE EVENT DATE: 20210813
